FAERS Safety Report 11150454 (Version 2)
Quarter: 2015Q2

REPORT INFORMATION
  Report Type: Spontaneous
  Country: BR (occurrence: BR)
  Receive Date: 20150531
  Receipt Date: 20150622
  Transmission Date: 20150821
  Serious: Yes (Other)
  Sender: FDA-Public Use
  Company Number: BR-AMGEN-BRASP2015051762

PATIENT
  Age: 56 Year
  Sex: Female
  Weight: 81 kg

DRUGS (7)
  1. PREGABALIN. [Concomitant]
     Active Substance: PREGABALIN
     Dosage: UNK
     Dates: start: 201504
  2. ENBREL [Suspect]
     Active Substance: ETANERCEPT
     Indication: RHEUMATOID ARTHRITIS
     Dosage: 50 MG/ WEEK
     Route: 065
     Dates: start: 201408
  3. CELEBRA [Concomitant]
     Active Substance: CELECOXIB
     Dosage: UNK
     Dates: start: 201408
  4. ALPRAZOLAM. [Concomitant]
     Active Substance: ALPRAZOLAM
     Dosage: UNK
     Dates: start: 2002
  5. STAVIGILE [Concomitant]
     Active Substance: MODAFINIL
     Dosage: UNK
  6. CLOZAPINE. [Concomitant]
     Active Substance: CLOZAPINE
     Dosage: UNK
     Dates: start: 201501
  7. VELIJA [Concomitant]
     Active Substance: DULOXETINE HYDROCHLORIDE
     Dosage: UNK
     Dates: start: 201409

REACTIONS (3)
  - Ocular hyperaemia [Recovered/Resolved]
  - Eye haemorrhage [Recovered/Resolved]
  - Eye pain [Recovered/Resolved]

NARRATIVE: CASE EVENT DATE: 2015
